FAERS Safety Report 5017747-9 (Version None)
Quarter: 2006Q2

REPORT INFORMATION
  Report Type: 
  Country: None (occurrence: None)
  Receive Date: 20060530
  Receipt Date: 20050503
  Transmission Date: 20061013
  Serious: Yes (Hospitalization)
  Sender: FDA-Public Use
  Company Number: 2005069572

PATIENT
  Sex: Male
  Weight: 86 kg

DRUGS (1)
  1. LYRICA [Suspect]
     Indication: NEURALGIA
     Dosage: APPROX. 50 CAPSULES (75 MG, ONCE), ORAL
     Route: 048
     Dates: start: 20050429, end: 20050429

REACTIONS (3)
  - FATIGUE [None]
  - NEURALGIA [None]
  - OVERDOSE [None]
